FAERS Safety Report 4873026-1 (Version None)
Quarter: 2005Q4

REPORT INFORMATION
  Report Type: 
  Country: None (occurrence: None)
  Receive Date: 20051201
  Receipt Date: 20050813
  Transmission Date: 20060501
  Serious: No
  Sender: FDA-Public Use
  Company Number: 2005PV001222

PATIENT
  Age: 63 Year
  Sex: Female
  Weight: 105.2345 kg

DRUGS (7)
  1. BYETTA [Suspect]
     Indication: DIABETES MELLITUS NON-INSULIN-DEPENDENT
     Dosage: 5 MCG; BID; SC
     Route: 058
     Dates: start: 20050808
  2. LANTUS [Concomitant]
  3. STARLIX [Concomitant]
  4. LASIX [Concomitant]
  5. KLOR-CON [Concomitant]
  6. SKELAXIN [Concomitant]
  7. ACETAMINOPHEN [Concomitant]

REACTIONS (8)
  - CHANGE OF BOWEL HABIT [None]
  - DECREASED APPETITE [None]
  - DRY MOUTH [None]
  - EARLY SATIETY [None]
  - FLATULENCE [None]
  - NAUSEA [None]
  - THERAPEUTIC RESPONSE UNEXPECTED [None]
  - WEIGHT DECREASED [None]
